FAERS Safety Report 5452113-3 (Version None)
Quarter: 2007Q3

REPORT INFORMATION
  Report Type: 
  Country: None (occurrence: None)
  Receive Date: 20070912
  Receipt Date: 20070829
  Transmission Date: 20080115
  Serious: Yes (Other)
  Sender: FDA-Public Use
  Company Number: TRP_00981_2007

PATIENT
  Sex: Female

DRUGS (4)
  1. RIBAVIRIN [Suspect]
     Indication: HEPATITIS C VIRUS
     Dosage: 1000 MG DAILY (600 MG IN THE MORNING AND 400 MG IN THE EVENING) ORAL
     Route: 048
     Dates: start: 20070202
  2. PEGASYS [Suspect]
     Indication: HEPATITIS C VIRUS
     Dosage: 180 UG 1X/WEEK SUBCUTANEOUS
     Route: 058
     Dates: start: 20070202
  3. DEXTROSTAT [Concomitant]
  4. PERCOCET [Concomitant]

REACTIONS (12)
  - ABDOMINAL PAIN [None]
  - ALOPECIA [None]
  - ANAEMIA [None]
  - CARDIAC MURMUR [None]
  - CRYING [None]
  - DEPRESSION [None]
  - FATIGUE [None]
  - INSOMNIA [None]
  - PALPITATIONS [None]
  - PHARYNGOLARYNGEAL PAIN [None]
  - PLATELET COUNT DECREASED [None]
  - WHITE BLOOD CELL COUNT DECREASED [None]
